FAERS Safety Report 17697289 (Version 1)
Quarter: 2020Q2

REPORT INFORMATION
  Report Type: Spontaneous
  Country: RU (occurrence: RU)
  Receive Date: 20200423
  Receipt Date: 20200423
  Transmission Date: 20200714
  Serious: Yes (Other)
  Sender: FDA-Public Use
  Company Number: RU-SA-2020SA103964

PATIENT
  Age: 60 Year
  Sex: Female
  Weight: 113 kg

DRUGS (6)
  1. BIOSULIN N [Suspect]
     Active Substance: INSULIN HUMAN
     Indication: TYPE 2 DIABETES MELLITUS
     Dosage: 56 IU, BID
     Route: 058
     Dates: start: 20190605, end: 20190607
  2. BIOSULIN R [Suspect]
     Active Substance: INSULIN HUMAN
     Indication: TYPE 2 DIABETES MELLITUS
     Dosage: 14 IU, TID
     Route: 058
     Dates: start: 20190605, end: 20190607
  3. LEVEMIR [Suspect]
     Active Substance: INSULIN DETEMIR
     Indication: TYPE 2 DIABETES MELLITUS
     Dosage: 56 IU, BID
     Route: 058
     Dates: start: 20190722, end: 20190723
  4. ACTRAPID [Suspect]
     Active Substance: INSULIN HUMAN
     Indication: TYPE 2 DIABETES MELLITUS
     Dosage: 14 IU, TID
     Route: 058
     Dates: start: 20190709, end: 20190711
  5. ISOPHANE INSULIN [Suspect]
     Active Substance: INSULIN NOS
     Indication: TYPE 2 DIABETES MELLITUS
     Dosage: 56 IU, BID
     Route: 058
     Dates: start: 20190709, end: 20190711
  6. TOUJEO [Suspect]
     Active Substance: INSULIN GLARGINE
     Indication: TYPE 2 DIABETES MELLITUS
     Dosage: 56 IU, BID
     Route: 058
     Dates: start: 20191213, end: 20191215

REACTIONS (4)
  - Vision blurred [Recovered/Resolved]
  - Visual acuity reduced [Recovered/Resolved]
  - Injection site induration [Recovered/Resolved]
  - Blood pressure increased [Recovered/Resolved]

NARRATIVE: CASE EVENT DATE: 201906
